FAERS Safety Report 12439552 (Version 1)
Quarter: 2016Q2

REPORT INFORMATION
  Report Type: Spontaneous
  Country: US (occurrence: US)
  Receive Date: 20160606
  Receipt Date: 20160606
  Transmission Date: 20160815
  Serious: No
  Sender: FDA-Public Use
  Company Number: US-DSJP-DSU-2015-133246

PATIENT
  Age: 53 Year
  Sex: Female
  Weight: 81.63 kg

DRUGS (23)
  1. PROTONIX [Concomitant]
     Active Substance: PANTOPRAZOLE SODIUM
     Indication: EROSIVE OESOPHAGITIS
     Dosage: 40 MG, QD
     Route: 048
     Dates: start: 2009, end: 2010
  2. DICLOFENAC                         /00372302/ [Concomitant]
     Indication: ANALGESIC INTERVENTION SUPPORTIVE THERAPY
     Dosage: 75 MG, UNK
     Dates: start: 200907
  3. AZOR [Suspect]
     Active Substance: AMLODIPINE BESYLATE\OLMESARTAN MEDOXOMIL
     Dosage: 5/40 MG, QD
     Route: 048
     Dates: start: 200712, end: 201504
  4. METOPROLOL TARTRATE. [Concomitant]
     Active Substance: METOPROLOL TARTRATE
     Indication: HYPERTENSION
     Dosage: 50 MG, QD
     Dates: start: 2007, end: 2009
  5. SIMVASTATIN. [Concomitant]
     Active Substance: SIMVASTATIN
     Indication: BLOOD CHOLESTEROL INCREASED
     Dosage: 40 MG, UNK
     Dates: start: 2007, end: 2014
  6. BENTYL [Concomitant]
     Active Substance: DICYCLOMINE HYDROCHLORIDE
     Indication: IRRITABLE BOWEL SYNDROME
     Dosage: 10 MG, UNK
     Dates: start: 2010
  7. AZOR [Suspect]
     Active Substance: AMLODIPINE BESYLATE\OLMESARTAN MEDOXOMIL
     Indication: HYPERTENSION
     Dosage: UNK
     Dates: start: 200711
  8. HYDROCODONE [Concomitant]
     Active Substance: HYDROCODONE
     Indication: PAIN
     Dosage: 325/5 MG, UNK
     Dates: start: 2006, end: 2013
  9. BENICAR [Suspect]
     Active Substance: OLMESARTAN MEDOXOMIL
     Dosage: 20 MG, QD
     Route: 048
     Dates: start: 200907, end: 201003
  10. CREON [Concomitant]
     Active Substance: PANCRELIPASE AMYLASE\PANCRELIPASE LIPASE\PANCRELIPASE PROTEASE
     Indication: DYSPEPSIA
     Dosage: 3600 UNIT CAPSULE, TID
     Dates: start: 20150407
  11. FLEXERIL [Concomitant]
     Active Substance: CYCLOBENZAPRINE HYDROCHLORIDE
     Indication: MUSCLE RELAXANT THERAPY
     Dosage: 10 MG, QD
     Dates: start: 201001
  12. VESICARE [Concomitant]
     Active Substance: SOLIFENACIN SUCCINATE
     Indication: HYPERTONIC BLADDER
     Dosage: 5 MG, QD
     Dates: start: 201503
  13. ZOLOFT [Concomitant]
     Active Substance: SERTRALINE HYDROCHLORIDE
     Indication: ANXIETY
     Dosage: 100 MG, QD
     Dates: start: 20060101
  14. LOVENOX [Concomitant]
     Active Substance: ENOXAPARIN SODIUM
     Indication: DEEP VEIN THROMBOSIS
     Dosage: 40 MG, UNK
     Dates: start: 200907
  15. FLEXERIL [Concomitant]
     Active Substance: CYCLOBENZAPRINE HYDROCHLORIDE
     Indication: PRODUCT USED FOR UNKNOWN INDICATION
     Dosage: 10 MG, UNK
  16. BENICAR [Suspect]
     Active Substance: OLMESARTAN MEDOXOMIL
     Indication: HYPERTENSION
     Dosage: UNK
     Dates: start: 200711
  17. AZOR [Suspect]
     Active Substance: AMLODIPINE BESYLATE\OLMESARTAN MEDOXOMIL
     Dosage: 5/20 MG, QD
     Route: 048
     Dates: start: 200712, end: 201504
  18. METOPROLOL SUCCINATE. [Concomitant]
     Active Substance: METOPROLOL SUCCINATE
     Indication: HYPERTENSION
     Dosage: 50 MG, QD
     Dates: start: 2012
  19. DETROL LA [Concomitant]
     Active Substance: TOLTERODINE TARTRATE
     Indication: PRODUCT USED FOR UNKNOWN INDICATION
     Dosage: 4 MG, UNK
     Dates: start: 2007, end: 201503
  20. ATORVASTATIN [Concomitant]
     Active Substance: ATORVASTATIN
     Indication: BLOOD CHOLESTEROL
     Dosage: 40 MG, QD
     Dates: start: 2008
  21. ZOLPIDEM TARTRATE. [Concomitant]
     Active Substance: ZOLPIDEM TARTRATE
     Indication: INSOMNIA
     Dosage: 10 MG, UNK
     Dates: start: 200907
  22. OXYBUTYNIN [Concomitant]
     Active Substance: OXYBUTYNIN
     Indication: URINARY INCONTINENCE
     Dosage: 10 MG, UNK
     Dates: start: 2007, end: 201503
  23. AMITIZA [Concomitant]
     Active Substance: LUBIPROSTONE
     Indication: CONSTIPATION
     Dosage: 24 ?G, UNK
     Dates: start: 2010

REACTIONS (7)
  - Rectocele [Unknown]
  - Polyp [Unknown]
  - Haemorrhoids [Unknown]
  - Lactose intolerance [Recovered/Resolved]
  - Malabsorption [Recovered/Resolved]
  - Diverticulum intestinal [Recovered/Resolved]
  - Irritable bowel syndrome [Unknown]

NARRATIVE: CASE EVENT DATE: 2009
